FAERS Safety Report 4884912-0 (Version None)
Quarter: 2005Q4

REPORT INFORMATION
  Report Type: 
  Country: None (occurrence: None)
  Receive Date: 20051201
  Receipt Date: 20050919
  Transmission Date: 20060501
  Serious: No
  Sender: FDA-Public Use
  Company Number: 2005PV002300

PATIENT
  Age: 68 Year
  Sex: Male
  Weight: 92.5338 kg

DRUGS (13)
  1. BYETTA [Suspect]
     Indication: DIABETES MELLITUS NON-INSULIN-DEPENDENT
     Dosage: 10 MCG; SC     5 MCG;BID;SC
     Route: 058
     Dates: start: 20050721, end: 20050728
  2. BYETTA [Suspect]
     Indication: DIABETES MELLITUS NON-INSULIN-DEPENDENT
     Dosage: 10 MCG; SC     5 MCG;BID;SC
     Route: 058
     Dates: start: 20050729
  3. LANTUS [Concomitant]
  4. ASPIRIN [Concomitant]
  5. TRICOR [Concomitant]
  6. ACTOS [Concomitant]
  7. HYZAAR [Concomitant]
  8. GLUCOPHAGE [Concomitant]
  9. CYMBALTA [Concomitant]
  10. ZETIA [Concomitant]
  11. CRESTOR [Concomitant]
  12. PRANDIN [Concomitant]
  13. AMARYL [Concomitant]

REACTIONS (2)
  - POLLAKIURIA [None]
  - WEIGHT DECREASED [None]
